FAERS Safety Report 9779651 (Version 1)
Quarter: 2013Q4

REPORT INFORMATION
  Report Type: Spontaneous
  Country: US (occurrence: US)
  Receive Date: 20131223
  Receipt Date: 20131223
  Transmission Date: 20140711
  Serious: No
  Sender: FDA-Public Use
  Company Number: US-PFIZER INC-2013362190

PATIENT
  Age: 58 Year
  Sex: Female

DRUGS (7)
  1. CIPROFLOXACIN [Suspect]
     Dosage: UNK
  2. MORPHINE SULFATE [Suspect]
     Dosage: UNK
  3. PERCOCET [Suspect]
     Dosage: UNK
  4. ACETYLSALICYLIC ACID [Suspect]
     Dosage: UNK
  5. DEMEROL [Suspect]
     Dosage: UNK
  6. KEFLEX [Suspect]
     Dosage: UNK
  7. IODINE [Suspect]
     Dosage: UNK
     Route: 042

REACTIONS (1)
  - Drug hypersensitivity [Unknown]
